FAERS Safety Report 8965407 (Version 1)
Quarter: 2012Q4

REPORT INFORMATION
  Report Type: 
  Country: UA (occurrence: UA)
  Receive Date: 20121214
  Receipt Date: 20121214
  Transmission Date: 20130627
  Serious: Yes (Life-Threatening)
  Sender: FDA-Public Use
  Company Number: PHHY2012UA115285

PATIENT
  Age: 58 Year
  Sex: Female

DRUGS (6)
  1. BENZYLPENICILLIN [Suspect]
     Indication: RHEUMATIC HEART DISEASE
     Dosage: 2400000 IU, UNK
     Route: 030
     Dates: start: 20090330, end: 20090330
  2. COCARBOXYLASE [Concomitant]
     Dates: start: 20090319
  3. NAKLOFEN [Concomitant]
     Dates: start: 20090319
  4. CORDARONE [Concomitant]
     Dates: start: 20090319
  5. PANANGIN [Concomitant]
     Dates: start: 20090319
  6. TRIMETAZIDINE [Concomitant]
     Dates: start: 20090319

REACTIONS (9)
  - Anxiety [Recovered/Resolved]
  - Hyperhidrosis [Recovered/Resolved]
  - Cyanosis [Recovered/Resolved]
  - Loss of consciousness [Recovered/Resolved]
  - Pallor [Recovered/Resolved]
  - Dizziness [Recovered/Resolved]
  - Asphyxia [Recovered/Resolved]
  - Feeling abnormal [Recovered/Resolved]
  - Apparent death [None]
